FAERS Safety Report 17341530 (Version 1)
Quarter: 2020Q1

REPORT INFORMATION
  Report Type: Spontaneous
  Country: US (occurrence: US)
  Receive Date: 20200129
  Receipt Date: 20200129
  Transmission Date: 20200409
  Serious: No
  Sender: FDA-Public Use
  Company Number: US-ALLERGAN-1917078US

PATIENT
  Age: 39 Year
  Sex: Female

DRUGS (2)
  1. BOTOX [Suspect]
     Active Substance: ONABOTULINUMTOXINA
     Indication: MIGRAINE
     Dosage: 200 UNITS, SINGLE
     Route: 030
     Dates: start: 20190220, end: 20190220
  2. ALEVE [Concomitant]
     Active Substance: NAPROXEN SODIUM
     Indication: DYSMENORRHOEA
     Dosage: 1 DF, PRN
     Route: 048

REACTIONS (3)
  - Migraine [Not Recovered/Not Resolved]
  - Drug ineffective [Unknown]
  - Off label use [Unknown]

NARRATIVE: CASE EVENT DATE: 201902
